FAERS Safety Report 7139596-8 (Version None)
Quarter: 2010Q4

REPORT INFORMATION
  Report Type: 
  Country: None (occurrence: None)
  Receive Date: 20101206
  Receipt Date: 20101110
  Transmission Date: 20110411
  Serious: Yes (Other)
  Sender: FDA-Public Use
  Company Number: DE-AMGEN-DEUSP2010004608

PATIENT

DRUGS (4)
  1. ENBREL [Suspect]
     Indication: RHEUMATOID ARTHRITIS
     Dosage: 50 MG, WEEKLY
     Dates: start: 20091120
  2. ENBREL [Suspect]
     Indication: POLYARTHRITIS
  3. MTX [Concomitant]
  4. DICLOFENAC [Concomitant]

REACTIONS (1)
  - OSTEOARTHRITIS [None]
